FAERS Safety Report 25370077 (Version 2)
Quarter: 2025Q2

REPORT INFORMATION
  Report Type: Report from Study
  Country: US (occurrence: US)
  Receive Date: 20250528
  Receipt Date: 20250609
  Transmission Date: 20250717
  Serious: Yes (Other)
  Sender: MALLINCKRODT
  Company Number: US-MALLINCKRODT-MNK202501691

PATIENT
  Age: 52 Year
  Sex: Female
  Weight: 105 kg

DRUGS (7)
  1. CORTICOTROPIN [Suspect]
     Active Substance: CORTICOTROPIN
     Indication: Ankylosing spondylitis
     Route: 058
     Dates: start: 20250314, end: 2025
  2. CORTICOTROPIN [Suspect]
     Active Substance: CORTICOTROPIN
     Dates: start: 2025
  3. INSULIN HUMAN [Concomitant]
     Active Substance: INSULIN HUMAN
  4. OZEMPIC [Concomitant]
     Active Substance: SEMAGLUTIDE
  5. OZEMPIC [Concomitant]
     Active Substance: SEMAGLUTIDE
  6. PREDNISONE [Concomitant]
     Active Substance: PREDNISONE
  7. PREDNISONE [Concomitant]
     Active Substance: PREDNISONE

REACTIONS (12)
  - Ankylosing spondylitis [Recovering/Resolving]
  - Urinary tract infection [Recovered/Resolved]
  - Nervousness [Not Recovered/Not Resolved]
  - Tremor [Unknown]
  - Pain [Recovering/Resolving]
  - Weight loss poor [Recovered/Resolved]
  - Sensitivity to weather change [Not Recovered/Not Resolved]
  - Fungal infection [Recovered/Resolved]
  - Injection site pruritus [Not Recovered/Not Resolved]
  - Injection site erythema [Unknown]
  - Hypersensitivity [Not Recovered/Not Resolved]
  - Wrong technique in product usage process [Unknown]

NARRATIVE: CASE EVENT DATE: 20250101
